FAERS Safety Report 4953518-7 (Version None)
Quarter: 2006Q1

REPORT INFORMATION
  Report Type: 
  Country: None (occurrence: None)
  Receive Date: 20060324
  Receipt Date: 20060316
  Transmission Date: 20060701
  Serious: Yes (Disabling)
  Sender: FDA-Public Use
  Company Number: AU-ROCHE-440695

PATIENT
  Age: 39 Year
  Sex: Male
  Weight: 100 kg

DRUGS (3)
  1. NAPROSYN [Suspect]
     Indication: DRUG USE FOR UNKNOWN INDICATION
     Dosage: 1.0 DOSE UNSPECIFIED DAILY.
     Route: 065
  2. BRICANYL [Concomitant]
  3. BECOTIDE [Concomitant]

REACTIONS (2)
  - AMNESIA [None]
  - EMOTIONAL DISTRESS [None]
